FAERS Safety Report 15653440 (Version 1)
Quarter: 2018Q4

REPORT INFORMATION
  Report Type: Spontaneous
  Country: US (occurrence: US)
  Receive Date: 20181124
  Receipt Date: 20181124
  Transmission Date: 20190205
  Serious: Yes (Hospitalization, Other)
  Sender: FDA-Public Use
  Company Number: US-ACCORD-092888

PATIENT
  Age: 31 Year
  Sex: Female

DRUGS (7)
  1. ALPRAZOLAM. [Interacting]
     Active Substance: ALPRAZOLAM
  2. QUETIAPINE. [Interacting]
     Active Substance: QUETIAPINE
  3. LITHIUM. [Interacting]
     Active Substance: LITHIUM
  4. HYDROXYZINE [Interacting]
     Active Substance: HYDROXYZINE HYDROCHLORIDE
  5. RISPERIDONE. [Interacting]
     Active Substance: RISPERIDONE
  6. AMITRIPTYLINE [Suspect]
     Active Substance: AMITRIPTYLINE
  7. PHYSOSTIGMINE/PHYSOSTIGMINE SALICYLATE/PHYSOSTIGMINE SULFATE [Interacting]
     Active Substance: PHYSOSTIGMINE

REACTIONS (8)
  - Drug interaction [Unknown]
  - Speech disorder [Unknown]
  - Dystonia [Recovered/Resolved]
  - Intentional overdose [Unknown]
  - Drug abuse [Unknown]
  - Confusional state [Unknown]
  - Delirium [Recovered/Resolved]
  - Anticholinergic syndrome [Unknown]
